FAERS Safety Report 5086517-8 (Version None)
Quarter: 2006Q3

REPORT INFORMATION
  Report Type: 
  Country: None (occurrence: None)
  Receive Date: 20060823
  Receipt Date: 20060811
  Transmission Date: 20061208
  Serious: Yes (Hospitalization)
  Sender: FDA-Public Use
  Company Number: PHFR2006GB02513

PATIENT
  Age: 65 Year
  Sex: Female

DRUGS (5)
  1. DICLOFENAC [Suspect]
     Indication: RHEUMATOID ARTHRITIS
     Dosage: 50 MG, TID
     Route: 048
  2. FOLIC ACID [Concomitant]
     Dosage: 5 MG, QD
     Route: 048
  3. HYDROCORTISONE [Concomitant]
     Indication: RHEUMATOID ARTHRITIS
     Dosage: 50 MG, TID
     Route: 048
  4. METHOTREXATE [Concomitant]
     Dosage: 75 MG, QW
     Route: 048
  5. RANITIDINE [Concomitant]
     Dosage: 150 MG, BID
     Route: 048

REACTIONS (17)
  - ABDOMINAL ABSCESS [None]
  - ABDOMINAL PAIN LOWER [None]
  - ABDOMINAL SEPSIS [None]
  - ACUTE ABDOMEN [None]
  - ARTHRITIS BACTERIAL [None]
  - COLECTOMY [None]
  - COLONIC STENOSIS [None]
  - DIARRHOEA [None]
  - FIBROSIS [None]
  - GASTROINTESTINAL DISORDER [None]
  - INFLAMMATION [None]
  - LAPAROTOMY [None]
  - LARGE INTESTINE PERFORATION [None]
  - MUCOSAL ULCERATION [None]
  - PNEUMOPERITONEUM [None]
  - PURULENT DISCHARGE [None]
  - VOMITING [None]
